FAERS Safety Report 4937245-8 (Version None)
Quarter: 2006Q1

REPORT INFORMATION
  Report Type: 
  Country: None (occurrence: None)
  Receive Date: 20060307
  Receipt Date: 20060307
  Transmission Date: 20060701
  Serious: Yes (Hospitalization)
  Sender: FDA-Public Use
  Company Number: None

PATIENT
  Age: 32 Year
  Sex: Female

DRUGS (1)
  1. PENICILLIN G PROCAINE [Suspect]
     Dosage: IT
     Route: 037

REACTIONS (3)
  - DYSPHAGIA [None]
  - ERYTHEMA [None]
  - PRURITUS [None]
